FAERS Safety Report 8965085 (Version 2)
Quarter: 2013Q1

REPORT INFORMATION
  Report Type: Spontaneous
  Country: US (occurrence: US)
  Receive Date: 20121214
  Receipt Date: 20130123
  Transmission Date: 20140127
  Serious: Yes (Other)
  Sender: FDA-Public Use
  Company Number: PHEH2012US024490

PATIENT
  Sex: Female
  Weight: 64.4 kg

DRUGS (10)
  1. RECLAST [Suspect]
     Indication: OSTEOPENIA
     Dosage: 5 MG/ 100 ML ONCE A YEAR
     Route: 042
     Dates: start: 20101102
  2. RECLAST [Suspect]
     Dosage: 5 MG/ 100 ML ONCE A YEAR
     Route: 042
  3. RECLAST [Suspect]
     Dosage: 5 MG/ 100 ML ONCE A YEAR
     Route: 042
     Dates: start: 20120703
  4. XANAX [Concomitant]
     Dosage: 15 MG, QD
     Dates: start: 20060809
  5. VITAMIN D [Concomitant]
  6. CALCIUM [Concomitant]
  7. FISH OIL [Concomitant]
  8. AMITRIPTYLINE [Concomitant]
  9. CELEBREX [Concomitant]
     Indication: ARTHRITIS
     Dosage: 200 MG, QD
     Dates: start: 19991222
  10. PREVACID [Concomitant]
     Dosage: 15 MG, QD
     Dates: start: 20080226

REACTIONS (7)
  - Irritable bowel syndrome [Unknown]
  - Constipation [Unknown]
  - Osteonecrosis of jaw [Unknown]
  - Bone disorder [Unknown]
  - Erythema [Unknown]
  - Pain [Unknown]
  - Swelling [Unknown]
